FAERS Safety Report 6585449-3 (Version None)
Quarter: 2010Q1

REPORT INFORMATION
  Report Type: 
  Country: None (occurrence: None)
  Receive Date: 20100217
  Receipt Date: 20100210
  Transmission Date: 20100710
  Serious: Yes (Death)
  Sender: FDA-Public Use
  Company Number: B0634028A

PATIENT
  Sex: Male

DRUGS (13)
  1. KREDEX [Suspect]
     Dosage: 6.25MG PER DAY
     Route: 048
     Dates: start: 20090901
  2. ZOLOFT [Suspect]
     Dosage: 50MG PER DAY
     Route: 048
     Dates: start: 20091224, end: 20100111
  3. SERESTA [Suspect]
     Dosage: 10MG PER DAY
     Route: 048
     Dates: start: 20091203, end: 20100110
  4. NEXIUM [Suspect]
     Indication: DRUG USE FOR UNKNOWN INDICATION
     Dosage: 20MG PER DAY
     Route: 048
     Dates: start: 20091202, end: 20100109
  5. TAHOR [Suspect]
     Dosage: 10MG PER DAY
     Route: 048
     Dates: start: 20091202, end: 20100110
  6. DISCOTRINE [Suspect]
     Dosage: 5MG PER DAY
     Route: 062
     Dates: start: 20090901, end: 20100111
  7. KARDEGIC [Suspect]
     Dosage: 160MG PER DAY
     Route: 048
     Dates: start: 20080101, end: 20100106
  8. LASILIX [Suspect]
     Dosage: 80MG PER DAY
     Route: 065
     Dates: start: 20080101, end: 20100106
  9. LEVOTHYROXINE SODIUM [Suspect]
     Indication: HYPOTHYROIDISM
     Dosage: 100UG PER DAY
     Route: 048
     Dates: end: 20100113
  10. DIFFU K [Suspect]
     Dosage: 600MG PER DAY
     Route: 048
     Dates: start: 20080101, end: 20091218
  11. STABLON [Concomitant]
     Dates: start: 20091202, end: 20091223
  12. KAYEXALATE [Concomitant]
     Dates: start: 20091218, end: 20091226
  13. ATARAX [Concomitant]

REACTIONS (8)
  - ACTIVATED PARTIAL THROMBOPLASTIN TIME PROLONGED [None]
  - DEPRESSION [None]
  - DISSEMINATED INTRAVASCULAR COAGULATION [None]
  - GENERAL PHYSICAL HEALTH DETERIORATION [None]
  - MAJOR DEPRESSION [None]
  - PROTHROMBIN TIME SHORTENED [None]
  - PURPURA [None]
  - THROMBOCYTOPENIA [None]
